FAERS Safety Report 9015784 (Version 4)
Quarter: 2013Q1

REPORT INFORMATION
  Report Type: Spontaneous
  Country: GB (occurrence: None)
  Receive Date: 20130102
  Receipt Date: 20130219
  Transmission Date: 20140127
  Serious: Yes (Hospitalization, Disabling)
  Sender: FDA-Public Use
  Company Number: ACO_33493_2012

PATIENT
  Age: 52 Year
  Sex: Female
  Weight: 52.2 kg

DRUGS (9)
  1. FAMPRIDINE-SR (FAMPRIDINE) TABLET [Suspect]
     Indication: MULTIPLE SCLEROSIS
     Route: 048
     Dates: start: 20120710, end: 20121203
  2. BACLOFEN (BACLOFEN) (BACLOFEN) [Concomitant]
  3. TIZANIDINE (TIZANIDINE HYDROCHLORIDE) [Concomitant]
  4. OMEPRAZOLE (OMEPRAZOLE) [Concomitant]
  5. PREGABALIN (PREGABALIN) [Concomitant]
  6. PREMARIN (ESTROGENS CONJUGATED) [Concomitant]
  7. TRIMETHOPRIM (TRIMETHOPRIM) [Concomitant]
  8. TROSPIUM (TROSPIUM) [Concomitant]
  9. AMANTADINE HYDROCHLORIDE (AMANTADINE HYDROCHLORIDE) [Concomitant]

REACTIONS (16)
  - Back pain [None]
  - Mobility decreased [None]
  - Abasia [None]
  - Gastrointestinal hypomotility [None]
  - Blood creatinine increased [None]
  - Urosepsis [None]
  - Headache [None]
  - Insomnia [None]
  - Constipation [None]
  - Nausea [None]
  - Candida infection [None]
  - Balance disorder [None]
  - Pyrexia [None]
  - Decreased appetite [None]
  - Malaise [None]
  - Urinary tract infection [None]
